FAERS Safety Report 16799440 (Version 1)
Quarter: 2019Q3

REPORT INFORMATION
  Report Type: Spontaneous
  Country: US (occurrence: US)
  Receive Date: 20190722
  Receipt Date: 20190722
  Transmission Date: 20191005
  Serious: Yes (Other)
  Sender: FDA-Public Use
  Company Number: None

PATIENT
  Age: 58 Year
  Sex: Male
  Weight: 72.57 kg

DRUGS (2)
  1. LOPRESSOR [Suspect]
     Active Substance: METOPROLOL TARTRATE
  2. COREG [Suspect]
     Active Substance: CARVEDILOL
     Indication: CARDIAC DISORDER
     Dosage: ?          QUANTITY:25 MG MILLIGRAM(S);?
     Route: 048
     Dates: start: 20190420, end: 20190422

REACTIONS (1)
  - Constipation [None]

NARRATIVE: CASE EVENT DATE: 20190420
